FAERS Safety Report 17410131 (Version 1)
Quarter: 2020Q1

REPORT INFORMATION
  Report Type: Spontaneous
  Country: US (occurrence: US)
  Receive Date: 20200212
  Receipt Date: 20200212
  Transmission Date: 20200409
  Serious: No
  Sender: FDA-Public Use
  Company Number: US-BAUSCH-BL-2020-002189

PATIENT
  Age: 79 Year
  Sex: Female

DRUGS (1)
  1. PRIMIDONE. [Suspect]
     Active Substance: PRIMIDONE
     Indication: ESSENTIAL TREMOR
     Route: 048
     Dates: start: 20200114, end: 20200116

REACTIONS (7)
  - Dizziness [Recovered/Resolved]
  - Gait disturbance [Recovered/Resolved]
  - Drug titration error [Unknown]
  - Malaise [Recovered/Resolved]
  - Asthenia [Recovered/Resolved]
  - Feeling abnormal [Recovered/Resolved]
  - Fatigue [Recovered/Resolved]

NARRATIVE: CASE EVENT DATE: 202001
